FAERS Safety Report 5588644-5 (Version None)
Quarter: 2008Q1

REPORT INFORMATION
  Report Type: 
  Country: None (occurrence: None)
  Receive Date: 20080111
  Receipt Date: 20080102
  Transmission Date: 20080703
  Serious: Yes (Hospitalization)
  Sender: FDA-Public Use
  Company Number: DE-ABBOTT-07P-062-0431018-00

PATIENT
  Sex: Female
  Weight: 57 kg

DRUGS (1)
  1. ZEMPLAR [Suspect]
     Indication: HYPERPARATHYROIDISM SECONDARY
     Route: 042
     Dates: start: 20070615

REACTIONS (7)
  - C-REACTIVE PROTEIN INCREASED [None]
  - DYSPNOEA [None]
  - EXTRINSIC VASCULAR COMPRESSION [None]
  - PNEUMONIA STAPHYLOCOCCAL [None]
  - STAPHYLOCOCCAL INFECTION [None]
  - TRAUMATIC HAEMATOMA [None]
  - WHITE BLOOD CELL COUNT INCREASED [None]
